FAERS Safety Report 4641458-2 (Version None)
Quarter: 2005Q2

REPORT INFORMATION
  Report Type: 
  Country: None (occurrence: None)
  Receive Date: 20050421
  Receipt Date: 20050308
  Transmission Date: 20051028
  Serious: Yes (Death, Other)
  Sender: FDA-Public Use
  Company Number: JP-MERCK-0503USA01444

PATIENT
  Age: 82 Year
  Sex: Male
  Weight: 44 kg

DRUGS (13)
  1. BONZOL [Concomitant]
     Indication: MYELODYSPLASTIC SYNDROME
     Route: 048
     Dates: start: 20050112, end: 20050310
  2. NAPROXEN [Concomitant]
     Indication: MYELODYSPLASTIC SYNDROME
     Route: 048
     Dates: start: 20040110, end: 20050310
  3. MUCOSTA [Concomitant]
     Indication: GASTRIC ULCER
     Route: 048
     Dates: start: 20040728, end: 20050310
  4. NICORANDIL [Concomitant]
     Indication: ANGINA PECTORIS
     Route: 048
     Dates: start: 20040728, end: 20050310
  5. NITOROL [Concomitant]
     Indication: ANGINA PECTORIS
     Route: 048
     Dates: start: 20040728, end: 20050310
  6. [THERAPY UNSPECIFIED] [Concomitant]
     Indication: CONSTIPATION
     Route: 048
     Dates: start: 20041222, end: 20050310
  7. PRIMAXIN [Suspect]
     Indication: PNEUMONIA
     Route: 041
     Dates: start: 20050222, end: 20050305
  8. NEORAL [Concomitant]
     Indication: MYELODYSPLASTIC SYNDROME
     Route: 048
     Dates: start: 20050216, end: 20050303
  9. DIFLUCAN [Concomitant]
     Indication: FUNGAL INFECTION
     Route: 041
     Dates: start: 20050222, end: 20050310
  10. PEPCID [Concomitant]
     Indication: GASTRIC ULCER
     Route: 041
     Dates: start: 20050222, end: 20050311
  11. GRAN [Concomitant]
     Indication: MYELODYSPLASTIC SYNDROME
     Route: 042
     Dates: start: 20050226, end: 20050311
  12. VANCOMYCIN [Concomitant]
     Indication: SINUSITIS
     Route: 042
     Dates: start: 20050302, end: 20050310
  13. VANCOMYCIN [Concomitant]
     Indication: PNEUMONIA
     Route: 042
     Dates: start: 20050302, end: 20050310

REACTIONS (2)
  - CONVULSION [None]
  - HAEMORRHAGE INTRACRANIAL [None]
